FAERS Safety Report 25615894 (Version 1)
Quarter: 2025Q3

REPORT INFORMATION
  Report Type: Spontaneous
  Country: CO (occurrence: CO)
  Receive Date: 20250729
  Receipt Date: 20250729
  Transmission Date: 20251021
  Serious: Yes (Other)
  Sender: EXELA PHARMA SCIENCES
  Company Number: CO-EXELAPHARMA-2025EXLA00133

PATIENT
  Age: 39 Year
  Sex: Male

DRUGS (9)
  1. GANCICLOVIR [Suspect]
     Active Substance: GANCICLOVIR
     Indication: Cytomegalovirus colitis
     Dosage: DOSE OF 5 MG/KG EVERY 12 H
     Route: 042
  2. FOSCARNET [Concomitant]
     Active Substance: FOSCARNET
     Indication: Cytomegalovirus colitis
     Dosage: 4.8 GR (90 MG/KG)
     Route: 042
  3. EMTRICITABINE\TENOFOVIR [Concomitant]
     Active Substance: EMTRICITABINE\TENOFOVIR
  4. DOLUTEGRAVIR [Concomitant]
     Active Substance: DOLUTEGRAVIR
  5. VALGANCICLOVIR [Concomitant]
     Active Substance: VALGANCICLOVIR
     Indication: Cytomegalovirus chorioretinitis
  6. VANCOMYCIN [Concomitant]
     Active Substance: VANCOMYCIN
     Dosage: ORAL VANCOMYCIN 125 MILLIGRAMS EVERY SIX HOURS, INCREASED TO 500 MILLI GRAMS
     Route: 048
  7. VANCOMYCIN [Concomitant]
     Active Substance: VANCOMYCIN
     Dosage: ORAL VANCOMYCIN 125 MILLIGRAMS EVERY SIX HOURS, INCREASED TO 500 MILLI GRAMS
     Route: 042
  8. METRONIDAZOLE [Concomitant]
     Active Substance: METRONIDAZOLE
     Dosage: 500 MILLIGRAMS
     Route: 042
  9. Intravenous fluids [Concomitant]
     Route: 042

REACTIONS (1)
  - Therapeutic product effect incomplete [Recovering/Resolving]
